FAERS Safety Report 7061735-8 (Version None)
Quarter: 2010Q4

REPORT INFORMATION
  Report Type: 
  Country: None (occurrence: None)
  Receive Date: 20101026
  Receipt Date: 20101014
  Transmission Date: 20110411
  Serious: Yes (Hospitalization)
  Sender: FDA-Public Use
  Company Number: JP-ELI_LILLY_AND_COMPANY-JP201004006586

PATIENT
  Sex: Male
  Weight: 64.4 kg

DRUGS (25)
  1. PEMETREXED [Suspect]
     Indication: LUNG ADENOCARCINOMA STAGE IV
     Dosage: 500 MG/M2, Q3D
     Route: 042
     Dates: start: 20100216
  2. PARAPLATIN [Concomitant]
     Indication: LUNG ADENOCARCINOMA STAGE IV
     Dosage: AUC6, Q3D
     Route: 042
     Dates: start: 20100216, end: 20100430
  3. PANVITAN [Concomitant]
     Dosage: 1 G, DAILY (1/D)
     Route: 048
     Dates: start: 20100208
  4. CYANOCOBALAMIN [Concomitant]
     Dosage: 1 MG, UNKNOWN
     Route: 030
     Dates: start: 20100208, end: 20100416
  5. KYTRIL [Concomitant]
     Indication: PROPHYLAXIS OF NAUSEA AND VOMITING
     Dosage: 3 MG, UNKNOWN
     Route: 042
     Dates: start: 20100216, end: 20100402
  6. DECADRON [Concomitant]
     Indication: PROPHYLAXIS OF NAUSEA AND VOMITING
     Dosage: 6.6 MG, UNKNOWN
     Route: 042
     Dates: start: 20100216, end: 20100402
  7. RENIVACE [Concomitant]
     Indication: HYPERTENSION
     Dosage: 2.5 MG, DAILY (1/D)
     Route: 048
  8. ALOSITOL [Concomitant]
     Indication: HYPERURICAEMIA
     Dosage: 100 MG, DAILY (1/D)
     Route: 048
  9. WARFARIN SODIUM [Concomitant]
     Indication: ATRIAL FIBRILLATION
     Dosage: 2 MG, DAILY (1/D)
     Route: 048
     Dates: end: 20100416
  10. WARFARIN SODIUM [Concomitant]
     Dosage: 4 MG, DAILY (1/D)
     Route: 048
     Dates: start: 20100417, end: 20100420
  11. WARFARIN SODIUM [Concomitant]
     Dosage: 3 MG, DAILY (1/D)
     Route: 048
     Dates: start: 20100421
  12. PIMENOL [Concomitant]
     Indication: ARRHYTHMIA
     Dosage: 200 MG, DAILY (1/D)
     Route: 048
  13. GASTER D [Concomitant]
     Indication: GASTRITIS PROPHYLAXIS
     Dosage: 20 MG, DAILY (1/D)
     Route: 048
  14. LOPRESSOR [Concomitant]
     Indication: HYPERTENSION
     Dosage: 40 MG, DAILY (1/D)
     Route: 048
  15. RIZE [Concomitant]
     Indication: ANXIETY
     Dosage: 5 MG, DAILY (1/D)
     Route: 048
  16. KENALOG [Concomitant]
     Indication: STOMATITIS
     Dosage: UNK, UNKNOWN
     Route: 002
     Dates: start: 20100215
  17. MYSLEE [Concomitant]
     Indication: INSOMNIA
     Dosage: 10 MG, DAILY (1/D)
     Route: 048
     Dates: start: 20100216
  18. CONTOMIN [Concomitant]
     Indication: HICCUPS
     Dosage: 12.5 MG, DAILY (1/D)
     Route: 048
     Dates: start: 20100217
  19. KENEI ENEMA [Concomitant]
     Indication: CONSTIPATION
     Dosage: 60 ML, DAILY (1/D)
     Route: 054
     Dates: start: 20100219, end: 20100219
  20. MAGLAX [Concomitant]
     Indication: CONSTIPATION
     Dosage: 1500 MG, DAILY (1/D)
     Route: 048
     Dates: start: 20100219
  21. PURSENNID [Concomitant]
     Indication: CONSTIPATION
     Dosage: 12 MG, DAILY (1/D)
     Route: 048
     Dates: start: 20100219, end: 20100219
  22. NAUZELIN [Concomitant]
     Indication: NAUSEA
     Dosage: 10 MG, DAILY (1/D)
     Route: 048
     Dates: start: 20100220, end: 20100220
  23. NAUZELIN [Concomitant]
     Dosage: 30 MG, DAILY (1/D)
     Route: 048
     Dates: start: 20100221
  24. AZUNOL [Concomitant]
     Indication: EXCORIATION
     Dosage: UNK, UNKNOWN
     Route: 058
     Dates: start: 20100226
  25. KETOPROFEN [Concomitant]
     Indication: BACK PAIN
     Dosage: 20 MG, AS NEEDED
     Route: 058
     Dates: start: 20100228

REACTIONS (1)
  - ARTERIAL OCCLUSIVE DISEASE [None]
